FAERS Safety Report 7683895-8 (Version None)
Quarter: 2011Q3

REPORT INFORMATION
  Report Type: 
  Country: None (occurrence: None)
  Receive Date: 20110815
  Receipt Date: 20110804
  Transmission Date: 20111222
  Serious: Yes (Hospitalization)
  Sender: FDA-Public Use
  Company Number: US-ASTRAZENECA-2011SE46663

PATIENT
  Age: 56 Year
  Sex: Female
  Weight: 77.1 kg

DRUGS (3)
  1. DILANTIN [Concomitant]
     Indication: CONVULSION
  2. PROZAC [Concomitant]
     Indication: DEPRESSION
     Dosage: 80 MILLIGRAM
  3. SEROQUEL XR [Suspect]
     Indication: DEPRESSION
     Route: 048
     Dates: end: 20110601

REACTIONS (7)
  - FOOT OPERATION [None]
  - LOSS OF CONSCIOUSNESS [None]
  - BACK INJURY [None]
  - CONVULSION [None]
  - LIMB CRUSHING INJURY [None]
  - ROAD TRAFFIC ACCIDENT [None]
  - SURGERY [None]
